FAERS Safety Report 10428542 (Version 1)
Quarter: 2014Q3

REPORT INFORMATION
  Report Type: Spontaneous
  Country: ZA (occurrence: None)
  Receive Date: 20140829
  Receipt Date: 20140829
  Transmission Date: 20150326
  Serious: Yes (Death, Hospitalization)
  Sender: FDA-Public Use
  Company Number: 2014PRN00020

PATIENT
  Age: 28 Year
  Sex: Male

DRUGS (6)
  1. NEVIRAPINE. [Suspect]
     Active Substance: NEVIRAPINE
     Indication: HIV INFECTION
  2. RISPERIDONE. [Concomitant]
     Active Substance: RISPERIDONE
  3. LAMIVUDINE. [Concomitant]
     Active Substance: LAMIVUDINE
  4. SODIUM VALPROATE [Concomitant]
     Active Substance: VALPROATE SODIUM
  5. PENICILLIN [Concomitant]
     Active Substance: PENICILLIN
  6. ZIDOVUDINE. [Concomitant]
     Active Substance: ZIDOVUDINE

REACTIONS (6)
  - Infection [None]
  - Rash [None]
  - Renal failure [None]
  - Stevens-Johnson syndrome [None]
  - Toxic epidermal necrolysis [None]
  - Disease progression [None]
